FAERS Safety Report 17146408 (Version 1)
Quarter: 2019Q4

REPORT INFORMATION
  Report Type: Report from Study
  Country: DE (occurrence: DE)
  Receive Date: 20191212
  Receipt Date: 20191212
  Transmission Date: 20200122
  Serious: Yes (Other)
  Sender: FDA-Public Use
  Company Number: DE-TEVA-2019-DE-1149750

PATIENT
  Sex: Female

DRUGS (5)
  1. LEVETIRACETAM. [Suspect]
     Active Substance: LEVETIRACETAM
     Indication: EPILEPSY
     Dosage: 1000 MILLIGRAM DAILY; 500 MG, 2X/DAY (BID)
     Dates: start: 20050525
  2. CLOBAZAM. [Suspect]
     Active Substance: CLOBAZAM
     Indication: EPILEPSY
     Dosage: 10 MILLIGRAM DAILY;
     Dates: start: 20050525
  3. VALPROIC ACID. [Suspect]
     Active Substance: VALPROIC ACID
     Indication: EPILEPSY
     Dosage: DAILY DOSE: 1500 MG, MAXIMUM SINGLE DOSE: 1000 MG
     Dates: start: 2005
  4. LAMOTRIGINE. [Concomitant]
     Active Substance: LAMOTRIGINE
     Indication: EPILEPSY
     Dosage: MAXIMAUM SINGLE DOSE: 200 MG.TOTAL DAILY DOSE : 350 MG
     Dates: start: 20031231, end: 20050622
  5. VALPROIC ACID. [Suspect]
     Active Substance: VALPROIC ACID
     Dosage: 500 MG, 2X/DAY (BID)
     Dates: start: 20011231

REACTIONS (4)
  - Maternal exposure during pregnancy [Recovered/Resolved]
  - Pregnancy on contraceptive [Unknown]
  - Premature delivery [Unknown]
  - Pregnancy with contraceptive device [Unknown]

NARRATIVE: CASE EVENT DATE: 20050528
